FAERS Safety Report 7560572-5 (Version None)
Quarter: 2011Q2

REPORT INFORMATION
  Report Type: 
  Country: None (occurrence: None)
  Receive Date: 20110621
  Receipt Date: 20100804
  Transmission Date: 20111010
  Serious: No
  Sender: FDA-Public Use
  Company Number: US-ASTRAZENECA-2010SE36732

PATIENT
  Age: 51 Year
  Sex: Female

DRUGS (2)
  1. RIFAXIMIN [Concomitant]
     Indication: OVERGROWTH BACTERIAL
  2. ENTOCORT EC [Suspect]
     Indication: GASTROINTESTINAL INFLAMMATION
     Route: 048
     Dates: start: 20100802

REACTIONS (2)
  - FEELING JITTERY [None]
  - MALAISE [None]
